FAERS Safety Report 8447064-6 (Version None)
Quarter: 2012Q2

REPORT INFORMATION
  Report Type: 
  Country: None (occurrence: None)
  Receive Date: 20120619
  Receipt Date: 20120614
  Transmission Date: 20120825
  Serious: Yes (Hospitalization)
  Sender: FDA-Public Use
  Company Number: PHHY2012IT051148

PATIENT
  Age: 60 Year
  Sex: Male

DRUGS (1)
  1. ALLOPURINOL [Suspect]
     Indication: GOUT

REACTIONS (12)
  - EYE INFLAMMATION [None]
  - NEOVASCULARISATION [None]
  - SYMBLEPHARON [None]
  - LACRIMATION DECREASED [None]
  - CONJUNCTIVITIS [None]
  - TOXIC EPIDERMAL NECROLYSIS [None]
  - OCULAR PEMPHIGOID [None]
  - TRANSPLANT [None]
  - ULCERATIVE KERATITIS [None]
  - FIBROSIS [None]
  - EYE PAIN [None]
  - CONJUNCTIVAL SCAR [None]
